FAERS Safety Report 8238102-4 (Version None)
Quarter: 2012Q1

REPORT INFORMATION
  Report Type: 
  Country: None (occurrence: None)
  Receive Date: 20120327
  Receipt Date: 20120323
  Transmission Date: 20120608
  Serious: Yes (Other)
  Sender: FDA-Public Use
  Company Number: DK-GLAXOSMITHKLINE-B0791174A

PATIENT
  Sex: Female

DRUGS (4)
  1. KLORZOXAZON (CHLORZOXAZON) [Concomitant]
     Indication: PRODUCT USED FOR UNKNOWN INDICATION
     Route: 065
     Dates: start: 20120105
  2. LAMOTRGINE [Suspect]
     Indication: BIPOLAR I DISORDER
     Route: 065
     Dates: start: 20100930
  3. TRAMADOL HCL [Concomitant]
     Indication: PRODUCT USED FOR UNKNOWN INDICATION
     Dosage: 50MG THREE TIMES PER DAY
     Route: 065
  4. IMOVANE [Concomitant]
     Indication: PRODUCT USED FOR UNKNOWN INDICATION
     Dosage: 7.5MG PER DAY
     Route: 065

REACTIONS (1)
  - HAEMORRHAGIC DISORDER [None]
